FAERS Safety Report 23527471 (Version 1)
Quarter: 2024Q1

REPORT INFORMATION
  Report Type: Spontaneous
  Country: US (occurrence: US)
  Receive Date: 20240215
  Receipt Date: 20240215
  Transmission Date: 20240410
  Serious: Yes (Other)
  Sender: FDA-Public Use
  Company Number: US-PFIZER INC-PV202400014398

PATIENT
  Age: 88 Year
  Sex: Female
  Weight: 63.5 kg

DRUGS (3)
  1. IBRANCE [Suspect]
     Active Substance: PALBOCICLIB
     Indication: Hormone receptor positive breast cancer
     Dosage: 100 MG PO DAILY, DAYS 1-21 OFF 7 DAYS IN A 28-DAY CYCLE
     Route: 048
     Dates: start: 20210908, end: 202302
  2. IBRANCE [Suspect]
     Active Substance: PALBOCICLIB
     Indication: Breast cancer female
  3. LETROZOLE [Suspect]
     Active Substance: LETROZOLE
     Dosage: UNK, DAILY
     Dates: start: 20210908

REACTIONS (7)
  - Tooth disorder [Unknown]
  - Pneumonitis [Unknown]
  - Cachexia [Unknown]
  - Osteonecrosis of jaw [Unknown]
  - Fatigue [Unknown]
  - Decreased appetite [Unknown]
  - Weight decreased [Unknown]
